FAERS Safety Report 9345121 (Version 7)
Quarter: 2014Q1

REPORT INFORMATION
  Report Type: Spontaneous
  Country: TW (occurrence: TW)
  Receive Date: 20130612
  Receipt Date: 20140327
  Transmission Date: 20141002
  Serious: Yes (Death, Life-Threatening, Hospitalization, Other)
  Sender: FDA-Public Use
  Company Number: TW-MPIJNJ-2013-04360

PATIENT
  Sex: 0

DRUGS (16)
  1. VELCADE [Suspect]
     Indication: PLASMA CELL MYELOMA
     Dosage: 1.8 MG/M2, CYCLIC
     Route: 058
     Dates: start: 20121214, end: 20130115
  2. DEXAMETHASONE [Concomitant]
     Indication: PLASMA CELL MYELOMA
     Dosage: 20 MG, CYCLIC
     Dates: start: 20130104, end: 20130115
  3. MOBIC [Concomitant]
     Dosage: UNK
     Dates: start: 20120629, end: 20130126
  4. STEPRONIN [Concomitant]
     Dosage: UNK
     Dates: start: 20130114
  5. SOLU-CORTEF [Concomitant]
     Indication: PROPHYLAXIS
     Dosage: UNK
     Dates: start: 20130114
  6. DIPHENHYDRAMINE [Concomitant]
     Indication: PROPHYLAXIS
     Dosage: UNK
     Dates: start: 20130114
  7. NOVAMIN                            /00013301/ [Concomitant]
     Indication: NAUSEA
     Dosage: UNK
     Dates: start: 20130114
  8. DULCOLAX                           /00064401/ [Concomitant]
     Indication: CONSTIPATION
     Dosage: UNK
     Dates: start: 20130114
  9. FENTANYL [Concomitant]
     Indication: PROCEDURAL PAIN
     Dosage: UNK
     Dates: start: 20130114
  10. MAGNESIUM OXIDE [Concomitant]
     Dosage: UNK
     Dates: start: 20130114
  11. METHYCOBAL                         /00324901/ [Concomitant]
     Indication: NEUROPATHY PERIPHERAL
     Dosage: UNK
     Dates: start: 20130114
  12. SOLAXIN                            /00041601/ [Concomitant]
     Indication: MUSCLE SPASMS
     Dosage: UNK
     Dates: start: 20130114
  13. ZOMETA [Concomitant]
     Indication: BONE PAIN
     Dosage: UNK
     Dates: start: 20130114
  14. PANTOPRAZOLE [Concomitant]
     Indication: GASTRIC ULCER
  15. PENICILLIN                         /00001805/ [Concomitant]
  16. SALBUTAMOL [Concomitant]

REACTIONS (3)
  - Sepsis [Fatal]
  - Shock haemorrhagic [Not Recovered/Not Resolved]
  - Upper gastrointestinal haemorrhage [Not Recovered/Not Resolved]
